FAERS Safety Report 8322560-0 (Version None)
Quarter: 2012Q2

REPORT INFORMATION
  Report Type: 
  Country: None (occurrence: None)
  Receive Date: 20120430
  Receipt Date: 20120414
  Transmission Date: 20120825
  Serious: Yes (Hospitalization, Other)
  Sender: FDA-Public Use
  Company Number: CN-BAYER-2012-041649

PATIENT
  Age: 59 Year
  Sex: Female

DRUGS (2)
  1. ANTIHYPERTENSIVES [Concomitant]
     Indication: HYPERTENSION
  2. ULTRAVIST 370 [Suspect]
     Dosage: 80 ML, ONCE
     Route: 042
     Dates: start: 20120414, end: 20120414

REACTIONS (4)
  - FACE OEDEMA [None]
  - URTICARIA [None]
  - UNEVALUABLE EVENT [None]
  - BLOOD PRESSURE DECREASED [None]
